APPROVED DRUG PRODUCT: DICYCLOMINE HYDROCHLORIDE
Active Ingredient: DICYCLOMINE HYDROCHLORIDE
Strength: 10MG/ML
Dosage Form/Route: INJECTABLE;INJECTION
Application: A207084 | Product #001
Applicant: RENEW PHARMACEUTICALS LTD
Approved: May 4, 2018 | RLD: No | RS: No | Type: DISCN